FAERS Safety Report 11721096 (Version 4)
Quarter: 2015Q4

REPORT INFORMATION
  Report Type: Report from Study
  Country: US (occurrence: US)
  Receive Date: 20151110
  Receipt Date: 20151209
  Transmission Date: 20160304
  Serious: Yes (Death, Other)
  Sender: FDA-Public Use
  Company Number: US-GILEAD-2015-0180512

PATIENT
  Age: 41 Year
  Sex: Male

DRUGS (1)
  1. EMTRICITABINE/TENOFOVIR DISOPROXIL FUMARATE [Suspect]
     Active Substance: EMTRICITABINE\TENOFOVIR DISOPROXIL
     Indication: CHRONIC HEPATITIS B
     Dosage: 300 MG, UNK
     Route: 048
     Dates: start: 20150427

REACTIONS (4)
  - Off label use [Unknown]
  - Chronic hepatic failure [Fatal]
  - Multi-organ failure [Fatal]
  - Hepatic cirrhosis [Fatal]
